FAERS Safety Report 23930739 (Version 1)
Quarter: 2024Q2

REPORT INFORMATION
  Report Type: Report from Study
  Country: CO (occurrence: CO)
  Receive Date: 20240603
  Receipt Date: 20240603
  Transmission Date: 20240717
  Serious: Yes (Other)
  Sender: FDA-Public Use
  Company Number: CO-JNJFOC-20240572844

PATIENT
  Age: 76 Year
  Sex: Male
  Weight: 65 kg

DRUGS (2)
  1. APALUTAMIDE [Suspect]
     Active Substance: APALUTAMIDE
     Indication: Hormone-refractory prostate cancer
     Route: 048
     Dates: start: 20240517
  2. APALUTAMIDE [Suspect]
     Active Substance: APALUTAMIDE
     Route: 048
     Dates: start: 20240523

REACTIONS (6)
  - Delirium [Unknown]
  - Somnolence [Unknown]
  - Discomfort [Unknown]
  - Amnesia [Unknown]
  - Illness [Unknown]
  - Confusional state [Unknown]

NARRATIVE: CASE EVENT DATE: 20240517
